FAERS Safety Report 8954638 (Version 4)
Quarter: 2013Q3

REPORT INFORMATION
  Report Type: Spontaneous
  Country: US (occurrence: US)
  Receive Date: 20121207
  Receipt Date: 20130830
  Transmission Date: 20140515
  Serious: Yes (Hospitalization)
  Sender: FDA-Public Use
  Company Number: US-B.I. PHARMACEUTICALS,INC./RIDGEFIELD-2012-BI-02200BP

PATIENT
  Age: 78 Year
  Sex: Female
  Weight: 79.38 kg

DRUGS (10)
  1. PRADAXA [Suspect]
     Indication: ATRIAL FIBRILLATION
     Dosage: 300 MG
     Dates: start: 20101218, end: 201108
  2. L-THYROXINE [Concomitant]
     Dosage: 0.5 MG
  3. LASIX [Concomitant]
  4. LISINOPRIL [Concomitant]
     Dosage: 10 MG
  5. COREG [Concomitant]
     Dosage: 40 MG
  6. PRAVACHOL [Concomitant]
     Dosage: 80 MG
  7. ASPIRIN [Concomitant]
     Dosage: 81 MG
  8. TYLENOL [Concomitant]
     Indication: ARTHRITIS
  9. NITROGLYCERIN [Concomitant]
  10. MULTAQ [Concomitant]
     Dosage: 800 MG

REACTIONS (3)
  - Gastrointestinal haemorrhage [Unknown]
  - Gastritis haemorrhagic [Unknown]
  - Haemorrhagic anaemia [Unknown]
